FAERS Safety Report 16696552 (Version 1)
Quarter: 2019Q3

REPORT INFORMATION
  Report Type: Spontaneous
  Country: US (occurrence: US)
  Receive Date: 20190813
  Receipt Date: 20190813
  Transmission Date: 20191004
  Serious: No
  Sender: FDA-Public Use
  Company Number: US-MYLANLABS-2019M1071884

PATIENT
  Age: 72 Year
  Sex: Female
  Weight: 90.71 kg

DRUGS (1)
  1. ERYGEL [Suspect]
     Active Substance: ERYTHROMYCIN
     Indication: TINEA PEDIS
     Dosage: UNK
     Dates: start: 20170801

REACTIONS (3)
  - Expired product administered [Recovered/Resolved]
  - Therapeutic response unexpected [Unknown]
  - Off label use [Recovered/Resolved]
